FAERS Safety Report 10399884 (Version 1)
Quarter: 2014Q3

REPORT INFORMATION
  Report Type: Spontaneous
  Country: US (occurrence: US)
  Receive Date: 20140821
  Receipt Date: 20140821
  Transmission Date: 20150326
  Serious: Yes (Other)
  Sender: FDA-Public Use
  Company Number: US-GLAXOSMITHKLINE-A1085786A

PATIENT
  Age: 54 Year
  Sex: Female

DRUGS (2)
  1. COREG CR [Suspect]
     Active Substance: CARVEDILOL PHOSPHATE
     Indication: PRODUCT USED FOR UNKNOWN INDICATION
     Route: 065
  2. FLOVENT [Suspect]
     Active Substance: FLUTICASONE PROPIONATE
     Indication: PRODUCT USED FOR UNKNOWN INDICATION
     Dosage: 110MCG UNKNOWN
     Route: 065
     Dates: start: 20130328

REACTIONS (2)
  - General physical health deterioration [Unknown]
  - Disability [Unknown]

NARRATIVE: CASE EVENT DATE: 2012
